FAERS Safety Report 25699960 (Version 1)
Quarter: 2025Q3

REPORT INFORMATION
  Report Type: Report from Study
  Country: US (occurrence: US)
  Receive Date: 20250819
  Receipt Date: 20250819
  Transmission Date: 20251020
  Serious: No
  Sender: SUNOVION
  Company Number: US-SUMITOMO PHARMA SWITZERLAND GMBH-2025SPA010422

PATIENT
  Age: 75 Year
  Sex: Male

DRUGS (16)
  1. ORGOVYX [Suspect]
     Active Substance: RELUGOLIX
     Indication: Prostate cancer
     Route: 048
  2. ORGOVYX [Suspect]
     Active Substance: RELUGOLIX
     Route: 048
  3. BENICAR [Concomitant]
     Active Substance: OLMESARTAN MEDOXOMIL
  4. CELEBREX [Concomitant]
     Active Substance: CELECOXIB
  5. CINNAMON [Concomitant]
     Active Substance: CINNAMON
  6. VITAMINS [Concomitant]
     Active Substance: VITAMINS
  7. EZETIMIBE [Concomitant]
     Active Substance: EZETIMIBE
  8. MOXIFLOXACIN [Concomitant]
     Active Substance: MOXIFLOXACIN
  9. NUBEQA [Concomitant]
     Active Substance: DAROLUTAMIDE
  10. PANTOPRAZOLE [Concomitant]
     Active Substance: PANTOPRAZOLE
  11. PREDNISOLONE [Concomitant]
     Active Substance: PREDNISOLONE
  12. TAMSULOSIN [Concomitant]
     Active Substance: TAMSULOSIN
  13. TRULICITY [Concomitant]
     Active Substance: DULAGLUTIDE
  14. VITAMIN D3 [Concomitant]
     Active Substance: CHOLECALCIFEROL
  15. WEGOVY [Concomitant]
     Active Substance: SEMAGLUTIDE
  16. ZYRTEC [Concomitant]
     Active Substance: CETIRIZINE HYDROCHLORIDE

REACTIONS (1)
  - Dental caries [Unknown]
